FAERS Safety Report 10515823 (Version 1)
Quarter: 2014Q3

REPORT INFORMATION
  Report Type: Spontaneous
  Country: US (occurrence: None)
  Receive Date: 20140926
  Receipt Date: 20140926
  Transmission Date: 20150326
  Serious: No
  Sender: FDA-Public Use
  Company Number: 1000070173

PATIENT
  Age: 65 Year
  Sex: Female

DRUGS (1)
  1. LINZESS [Suspect]
     Active Substance: LINACLOTIDE
     Dosage: 145 MCG  (145 MCG, 1 IN 1 D), ORAL
     Route: 048

REACTIONS (5)
  - Ataxia [None]
  - Confusional state [None]
  - Dizziness [None]
  - Fall [None]
  - Headache [None]
